FAERS Safety Report 9011406 (Version 2)
Quarter: 2013Q1

REPORT INFORMATION
  Report Type: Spontaneous
  Country: FR (occurrence: FR)
  Receive Date: 20130108
  Receipt Date: 20130308
  Transmission Date: 20140127
  Serious: Yes (Hospitalization)
  Sender: FDA-Public Use
  Company Number: FR-JNJFOC-20130102390

PATIENT
  Age: 8 Month
  Sex: Male
  Weight: 6.4 kg

DRUGS (1)
  1. FENTANYL TRANSDERMAL SYSTEM [Suspect]
     Indication: ACCIDENTAL EXPOSURE TO PRODUCT
     Route: 048

REACTIONS (8)
  - Gaze palsy [Recovered/Resolved]
  - Toxicity to various agents [Unknown]
  - Miosis [Recovered/Resolved]
  - Somnolence [Recovered/Resolved]
  - Fall [Unknown]
  - Unresponsive to stimuli [Recovered/Resolved]
  - Hypertonia [Recovered/Resolved]
  - Hypoxia [Recovered/Resolved]
